FAERS Safety Report 11166141 (Version 1)
Quarter: 2015Q2

REPORT INFORMATION
  Report Type: Spontaneous
  Country: GB (occurrence: GB)
  Receive Date: 20150605
  Receipt Date: 20150605
  Transmission Date: 20150821
  Serious: Yes (Hospitalization)
  Sender: FDA-Public Use
  Company Number: GB-DRREDDYS-GER/UKI/15/0048388

PATIENT
  Age: 78 Year
  Sex: Male
  Weight: 63.7 kg

DRUGS (9)
  1. BISOPROLOL [Suspect]
     Active Substance: BISOPROLOL
     Indication: HYPERTENSION
     Route: 065
     Dates: start: 20111006
  2. FINASTERIDE. [Suspect]
     Active Substance: FINASTERIDE
     Indication: BENIGN PROSTATIC HYPERPLASIA
     Route: 065
     Dates: start: 20010806
  3. RIVAROXABAN [Concomitant]
     Active Substance: RIVAROXABAN
     Indication: ATRIAL FIBRILLATION
     Route: 065
     Dates: start: 20141202
  4. SPIRONOLACTONE. [Suspect]
     Active Substance: SPIRONOLACTONE
     Indication: OEDEMA
     Route: 065
     Dates: start: 20150325
  5. BUMETANIDE. [Suspect]
     Active Substance: BUMETANIDE
     Indication: OEDEMA
     Route: 065
     Dates: start: 20150323
  6. ATORVASTATIN [Concomitant]
     Active Substance: ATORVASTATIN
     Indication: HYPERCHOLESTEROLAEMIA
     Route: 065
     Dates: start: 20111209
  7. TAMSULOSIN [Suspect]
     Active Substance: TAMSULOSIN
     Indication: URINARY RETENTION
     Route: 065
     Dates: start: 20150202
  8. INDORAMIN [Suspect]
     Active Substance: INDORAMIN
     Indication: PROPHYLAXIS
     Route: 065
     Dates: start: 19971112
  9. ISOSORBIDE [Suspect]
     Active Substance: ISOSORBIDE
     Indication: PROPHYLAXIS
     Route: 065
     Dates: start: 20110315

REACTIONS (1)
  - Laceration [Recovered/Resolved]

NARRATIVE: CASE EVENT DATE: 20150429
